FAERS Safety Report 23921978 (Version 1)
Quarter: 2024Q2

REPORT INFORMATION
  Report Type: Spontaneous
  Country: GB (occurrence: GB)
  Receive Date: 20240531
  Receipt Date: 20240531
  Transmission Date: 20240716
  Serious: Yes (Hospitalization, Other)
  Sender: FDA-Public Use
  Company Number: GB-MHRA-MIDB-fa3ed8fe-e10c-418e-a401-5ca5450aa04f

PATIENT
  Age: 59 Year
  Sex: Male

DRUGS (3)
  1. REMICADE [Suspect]
     Active Substance: INFLIXIMAB
     Indication: Product used for unknown indication
     Route: 042
  2. PREDNISOLONE [Concomitant]
     Active Substance: PREDNISOLONE
  3. CHLORPHENIRAMINE MALEATE [Concomitant]
     Active Substance: CHLORPHENIRAMINE MALEATE

REACTIONS (1)
  - Swollen tongue [Recovered/Resolved]
